FAERS Safety Report 23160638 (Version 2)
Quarter: 2023Q4

REPORT INFORMATION
  Report Type: Report from Study
  Country: US (occurrence: US)
  Receive Date: 20231108
  Receipt Date: 20231204
  Transmission Date: 20240110
  Serious: Yes (Other)
  Sender: FDA-Public Use
  Company Number: US-ALXN-A202313530

PATIENT
  Sex: Male

DRUGS (1)
  1. STRENSIQ [Suspect]
     Active Substance: ASFOTASE ALFA
     Indication: Hypophosphatasia
     Dosage: UNK
     Route: 065

REACTIONS (8)
  - Nephrolithiasis [Unknown]
  - Seizure [Not Recovered/Not Resolved]
  - Muscle spasms [Not Recovered/Not Resolved]
  - Hypoaesthesia [Unknown]
  - Gait inability [Not Recovered/Not Resolved]
  - Vitamin B6 deficiency [Unknown]
  - Stress [Unknown]
  - Pain [Unknown]
